FAERS Safety Report 5112514-X (Version None)
Quarter: 2006Q3

REPORT INFORMATION
  Report Type: 
  Country: None (occurrence: None)
  Receive Date: 20060802
  Receipt Date: 20060411
  Transmission Date: 20061208
  Serious: No
  Sender: FDA-Public Use
  Company Number: 200613431US

PATIENT
  Age: 67 Year
  Sex: Female

DRUGS (3)
  1. KETEK [Suspect]
     Indication: INFLUENZA
     Dosage: 800 MG QD PO
     Route: 048
     Dates: start: 20060320, end: 20060320
  2. LORATADINE [Concomitant]
  3. TAMIFLU [Concomitant]

REACTIONS (4)
  - FEELING COLD [None]
  - NAUSEA [None]
  - PRURITUS [None]
  - RASH [None]
